FAERS Safety Report 4404737-X (Version None)
Quarter: 2004Q3

REPORT INFORMATION
  Report Type: 
  Country: None (occurrence: None)
  Receive Date: 20040722
  Receipt Date: 20040714
  Transmission Date: 20050211
  Serious: Yes (Other)
  Sender: FDA-Public Use
  Company Number: GA-GLAXOSMITHKLINE-B0339864A

PATIENT

DRUGS (1)
  1. MALARONE [Suspect]
     Indication: MALARIA
     Route: 048

REACTIONS (4)
  - ANAPHYLACTIC REACTION [None]
  - HYPOTENSION [None]
  - URTICARIA GENERALISED [None]
  - VOMITING [None]
